FAERS Safety Report 11474668 (Version 1)
Quarter: 2015Q3

REPORT INFORMATION
  Report Type: Spontaneous
  Country: US (occurrence: None)
  Receive Date: 20150902
  Receipt Date: 20150902
  Transmission Date: 20151125
  Serious: Yes (Hospitalization)
  Sender: FDA-Public Use
  Company Number: A-US2014-106711

PATIENT
  Age: 58 Year
  Sex: Female

DRUGS (5)
  1. REVATIO (SILDENAFIL CITRATE) [Concomitant]
  2. LETAIRIS [Concomitant]
     Active Substance: AMBRISENTAN
  3. OXYGEN (OXYGEN) [Concomitant]
     Active Substance: OXYGEN
  4. XARELTO [Concomitant]
     Active Substance: RIVAROXABAN
  5. VELETRI [Suspect]
     Active Substance: EPOPROSTENOL
     Indication: PULMONARY ARTERIAL HYPERTENSION
     Dosage: PER MIN
     Route: 042
     Dates: start: 20140924

REACTIONS (8)
  - Dyspnoea [None]
  - Nausea [None]
  - Pain in extremity [None]
  - Diarrhoea [None]
  - Pain [None]
  - Headache [None]
  - Vomiting [None]
  - Pain in jaw [None]

NARRATIVE: CASE EVENT DATE: 20141002
